FAERS Safety Report 25625316 (Version 1)
Quarter: 2025Q3

REPORT INFORMATION
  Report Type: Spontaneous
  Country: CN (occurrence: CN)
  Receive Date: 20250731
  Receipt Date: 20250731
  Transmission Date: 20251021
  Serious: Yes (Life-Threatening, Hospitalization, Other)
  Sender: BAXTER
  Company Number: None

PATIENT
  Age: 57 Year
  Sex: Female
  Weight: 62.5 kg

DRUGS (10)
  1. CYCLOPHOSPHAMIDE [Suspect]
     Active Substance: CYCLOPHOSPHAMIDE
     Indication: Lymphoma
     Dosage: 1.275 G, QD, DAY1
     Route: 041
     Dates: start: 20250706, end: 20250706
  2. SODIUM CHLORIDE [Suspect]
     Active Substance: SODIUM CHLORIDE
     Dosage: 1000 ML, QD (RITUXIMAB INJECTION 640MG + 0.9% SODIUM CHLORIDE INJECTION) DAY 0
     Route: 041
     Dates: start: 20250705, end: 20250705
  3. RITUXIMAB [Suspect]
     Active Substance: RITUXIMAB
     Indication: Lymphoma
     Dosage: 640 MG, QD
     Route: 041
     Dates: start: 20250705, end: 20250705
  4. DOXORUBICIN HYDROCHLORIDE [Suspect]
     Active Substance: DOXORUBICIN HYDROCHLORIDE
     Indication: Lymphoma
     Dosage: 85 MG, QD, DAY1
     Route: 042
     Dates: start: 20250706, end: 20250706
  5. VINCRISTINE SULFATE [Suspect]
     Active Substance: VINCRISTINE SULFATE
     Indication: Lymphoma
     Dosage: 2 MG, QD, DAY 1
     Route: 041
     Dates: start: 20250706, end: 20250706
  6. SODIUM CHLORIDE [Suspect]
     Active Substance: SODIUM CHLORIDE
     Indication: Medication dilution
     Dosage: 640 ML, QD
     Route: 041
     Dates: start: 20250705, end: 20250705
  7. SODIUM CHLORIDE [Suspect]
     Active Substance: SODIUM CHLORIDE
     Dosage: 50 ML, QD (VINCRISTINE SULFATE FOR INJECTION +0.9% SODIUM CHLORIDE) DAY 1
     Route: 041
     Dates: start: 20250706, end: 20250706
  8. SODIUM CHLORIDE [Suspect]
     Active Substance: SODIUM CHLORIDE
     Dosage: 250 ML, QD (CYCLOPHOSPHAMIDE +0.9% SODIUM CHLORIDE INJECTION) DAY 0
     Route: 041
     Dates: start: 20250706, end: 20250706
  9. STERILE WATER [Suspect]
     Active Substance: WATER
     Indication: Medication dilution
     Dosage: 42.5 ML, QD (DOXORUBICIN HYDROCHLORIDE + STERILE WATER)
     Route: 042
     Dates: start: 20250706, end: 20250706
  10. PREDNISONE ACETATE [Suspect]
     Active Substance: PREDNISONE ACETATE
     Indication: Lymphoma
     Dosage: 100 MG, QD
     Route: 048
     Dates: start: 20250706, end: 20250710

REACTIONS (2)
  - Agranulocytosis [Recovering/Resolving]
  - White blood cell count decreased [Recovering/Resolving]

NARRATIVE: CASE EVENT DATE: 20250716
